FAERS Safety Report 12555788 (Version 1)
Quarter: 2016Q3

REPORT INFORMATION
  Report Type: Spontaneous
  Country: MX (occurrence: MX)
  Receive Date: 20160714
  Receipt Date: 20160714
  Transmission Date: 20161109
  Serious: Yes (Death, Other)
  Sender: FDA-Public Use
  Company Number: MX-APOTEX-2016AP009839

PATIENT
  Age: 63 Year
  Sex: Male

DRUGS (1)
  1. PAXIL CR [Suspect]
     Active Substance: PAROXETINE HYDROCHLORIDE
     Indication: DEPRESSION
     Dosage: 0.5 DF, BID
     Route: 065

REACTIONS (1)
  - Death [Fatal]
